FAERS Safety Report 26166451 (Version 1)
Quarter: 2025Q4

REPORT INFORMATION
  Report Type: Report from Study
  Country: US (occurrence: US)
  Receive Date: 20251217
  Receipt Date: 20251217
  Transmission Date: 20260118
  Serious: Yes (Hospitalization)
  Sender: ABBVIE
  Company Number: US-ABBVIE-6589334

PATIENT
  Age: 36 Year
  Sex: Male

DRUGS (1)
  1. SKYRIZI [Suspect]
     Active Substance: RISANKIZUMAB-RZAA
     Indication: Crohn^s disease
     Route: 058
     Dates: start: 20250219

REACTIONS (5)
  - Haematochezia [Unknown]
  - Presyncope [Unknown]
  - Asthenia [Unknown]
  - Headache [Unknown]
  - Dysstasia [Unknown]

NARRATIVE: CASE EVENT DATE: 20250101
